FAERS Safety Report 9065035 (Version 2)
Quarter: 2013Q1

REPORT INFORMATION
  Report Type: Spontaneous
  Country: US (occurrence: US)
  Receive Date: 20130206
  Receipt Date: 20130213
  Transmission Date: 20140127
  Serious: Yes (Other)
  Sender: FDA-Public Use
  Company Number: US-ROCHE-1186841

PATIENT
  Age: 70 Year
  Sex: Male
  Weight: 86 kg

DRUGS (2)
  1. ACTILYSE [Suspect]
     Indication: CAROTID ARTERY OCCLUSION
     Route: 040
  2. ACTILYSE [Suspect]
     Dosage: DURING THE 60 MIN FOLLOWING THE BOLUS ADMINISTRATION
     Route: 040

REACTIONS (5)
  - Coronary artery thrombosis [Recovered/Resolved]
  - Bradycardia [Recovered/Resolved]
  - Hypotension [Recovered/Resolved]
  - Mental status changes [Unknown]
  - Altered state of consciousness [Unknown]
